FAERS Safety Report 6108400-9 (Version None)
Quarter: 2009Q1

REPORT INFORMATION
  Report Type: 
  Country: None (occurrence: None)
  Receive Date: 20090309
  Receipt Date: 20090226
  Transmission Date: 20090719
  Serious: Yes (Hospitalization, Other)
  Sender: FDA-Public Use
  Company Number: PHHY2009JP06137

PATIENT
  Age: 48 Year
  Sex: Male

DRUGS (7)
  1. CYCLOSPORINE [Suspect]
     Indication: RENAL TRANSPLANT
     Dosage: 150 MG/DAY
     Route: 048
  2. AZATHIOPRINE [Suspect]
     Indication: RENAL TRANSPLANT
     Route: 048
  3. PREDONINE [Suspect]
     Indication: RENAL TRANSPLANT
     Dosage: 10 MG/DAY
     Route: 048
  4. AHLBULIN [Suspect]
     Indication: RENAL TRANSPLANT
     Dosage: UNK
  5. BREDININ [Suspect]
     Indication: RENAL TRANSPLANT
     Dosage: 150 MG/DAY
     Route: 048
  6. PROGRAF [Suspect]
     Indication: RENAL TRANSPLANT
     Dosage: 4 MG/DAY
  7. ATGAM [Concomitant]

REACTIONS (17)
  - ABDOMINAL TENDERNESS [None]
  - ACNE [None]
  - BLOOD CREATININE INCREASED [None]
  - DEBRIDEMENT [None]
  - DEHYDRATION [None]
  - HAEMODIALYSIS [None]
  - IMPAIRED HEALING [None]
  - KIDNEY ENLARGEMENT [None]
  - KIDNEY TRANSPLANT REJECTION [None]
  - NASOPHARYNGITIS [None]
  - REMOVAL OF RENAL TRANSPLANT [None]
  - RENAL FAILURE [None]
  - SKIN GRAFT [None]
  - SKIN INFECTION [None]
  - SKIN LESION [None]
  - SUBCUTANEOUS ABSCESS [None]
  - TENDERNESS [None]
